FAERS Safety Report 19824274 (Version 2)
Quarter: 2021Q3

REPORT INFORMATION
  Report Type: Report from Study
  Country: None (occurrence: KR)
  Receive Date: 20210913
  Receipt Date: 20210930
  Transmission Date: 20211014
  Serious: Yes (Hospitalization)
  Sender: FDA-Public Use
  Company Number: KR-ABBVIE-21K-090-4074425-00

PATIENT
  Age: 82 Year
  Sex: Male
  Weight: 62 kg

DRUGS (13)
  1. DUPHALAC [Concomitant]
     Active Substance: LACTULOSE
     Indication: PROPHYLAXIS
     Dosage: 1PACK
     Route: 048
     Dates: start: 20210401
  2. PARAMEL [Concomitant]
     Indication: PROPHYLAXIS
     Route: 048
     Dates: start: 20191018
  3. WARFARIN [Concomitant]
     Active Substance: WARFARIN
     Indication: ATRIAL FIBRILLATION
     Dosage: WARFARIN?5
     Route: 048
     Dates: start: 20091219
  4. LASIX [Concomitant]
     Active Substance: FUROSEMIDE
     Indication: ATRIAL FIBRILLATION
     Route: 048
     Dates: start: 20191118
  5. CONBLOC [Concomitant]
     Indication: ATRIAL FIBRILLATION
     Route: 048
     Dates: start: 20200901
  6. ATACAND [Concomitant]
     Active Substance: CANDESARTAN CILEXETIL
     Indication: ATRIAL FIBRILLATION
     Dosage: ATACAND?8
     Route: 048
     Dates: start: 20191118
  7. GLIME M [Concomitant]
     Indication: DIABETES MELLITUS
     Dosage: GLIME M (1/250MG)
     Route: 048
     Dates: start: 20201124
  8. GUARDLET [Concomitant]
     Indication: DIABETES MELLITUS
     Route: 048
     Dates: start: 20200901
  9. IMPACTAMIN POWER [Concomitant]
     Indication: VITAMIN SUPPLEMENTATION
     Route: 048
     Dates: start: 20200311
  10. MAVIRET [Suspect]
     Active Substance: GLECAPREVIR\PIBRENTASVIR
     Indication: CHRONIC HEPATITIS C
     Route: 048
     Dates: start: 20210408, end: 20210617
  11. MAVIRET [Suspect]
     Active Substance: GLECAPREVIR\PIBRENTASVIR
     Route: 048
     Dates: start: 202106, end: 202108
  12. URSA [Concomitant]
     Active Substance: URSODIOL
     Indication: PROPHYLAXIS
     Dosage: URSA?200
     Route: 048
     Dates: start: 20120802
  13. MAGMIL [Concomitant]
     Active Substance: MAGNESIUM HYDROXIDE
     Indication: CONSTIPATION
     Dosage: 500 MG
     Route: 048
     Dates: start: 20210401

REACTIONS (6)
  - Oesophageal candidiasis [Unknown]
  - Vomiting [Unknown]
  - Nausea [Unknown]
  - Diabetic gastropathy [Recovered/Resolved]
  - Hypophagia [Unknown]
  - Intentional product misuse [Unknown]

NARRATIVE: CASE EVENT DATE: 20210607
